FAERS Safety Report 8509328 (Version 6)
Quarter: 2018Q3

REPORT INFORMATION
  Report Type: Spontaneous
  Country: FR (occurrence: FR)
  Receive Date: 20120412
  Receipt Date: 20180925
  Transmission Date: 20181010
  Serious: Yes (Life-Threatening, Hospitalization, Other)
  Sender: FDA-Public Use
  Company Number: FR-BAXTER-2012BAX001907

PATIENT
  Age: 39 Year
  Sex: Male

DRUGS (23)
  1. RAMIPRIL. [Concomitant]
     Active Substance: RAMIPRIL
     Indication: HYPERTENSION
     Dosage: 1 UNIT
     Route: 065
     Dates: end: 20120217
  2. ESOMEPRAZOLE [Concomitant]
     Active Substance: ESOMEPRAZOLE
     Indication: PRODUCT USED FOR UNKNOWN INDICATION
     Route: 065
  3. SODIUM POLYSTYRENE SULFONATE. [Concomitant]
     Active Substance: SODIUM POLYSTYRENE SULFONATE
     Indication: PRODUCT USED FOR UNKNOWN INDICATION
     Dosage: 1 MEASURING SPOON/DAY
     Route: 065
  4. EXTRANEAL [Suspect]
     Active Substance: CALCIUM CHLORIDE\ICODEXTRIN\MAGNESIUM CHLORIDE\SODIUM CHLORIDE\SODIUM LACTATE
     Indication: PERITONEAL DIALYSIS
     Route: 033
     Dates: start: 20120307, end: 20120309
  5. CALCIPARINE [Concomitant]
     Active Substance: HEPARIN CALCIUM
     Indication: PRODUCT USED FOR UNKNOWN INDICATION
     Route: 065
     Dates: start: 20120126
  6. OFLOXACINE [Suspect]
     Active Substance: OFLOXACIN
     Indication: INSERTION OF AMBULATORY PERITONEAL CATHETER
  7. PREDNISONE. [Concomitant]
     Active Substance: PREDNISONE
     Indication: PRODUCT USED FOR UNKNOWN INDICATION
     Route: 048
  8. PROPOFOL. [Concomitant]
     Active Substance: PROPOFOL
     Indication: GENERAL ANAESTHESIA
     Route: 065
     Dates: start: 20120214, end: 20120214
  9. OFLOXACINE [Suspect]
     Active Substance: OFLOXACIN
     Indication: INFECTION PROPHYLAXIS
     Dosage: 200MG/40 ML
     Route: 042
     Dates: start: 20120214, end: 20120214
  10. URAPIDIL [Suspect]
     Active Substance: URAPIDIL
     Indication: HYPERTENSION
     Route: 065
     Dates: start: 20120217
  11. FLUINDIONE [Suspect]
     Active Substance: FLUINDIONE
     Indication: PRODUCT USED FOR UNKNOWN INDICATION
     Dosage: SWITCHED TO CALCIPARINE
     Route: 048
     Dates: start: 20111125, end: 20120126
  12. FLUINDIONE [Suspect]
     Active Substance: FLUINDIONE
     Route: 048
     Dates: start: 20120216
  13. SPASFON                            /00934601/ [Concomitant]
     Active Substance: PHLOROGLUCINOL
     Indication: ANALGESIC THERAPY
     Route: 065
     Dates: start: 20120214
  14. ACEBUTOLOL [Concomitant]
     Active Substance: ACEBUTOLOL
     Indication: PRODUCT USED FOR UNKNOWN INDICATION
     Route: 048
     Dates: start: 20120126
  15. PARACETOL [Concomitant]
     Indication: ANALGESIC THERAPY
     Route: 065
     Dates: start: 20120214
  16. LASILIX                            /00032601/ [Concomitant]
     Active Substance: FUROSEMIDE
     Indication: PRODUCT USED FOR UNKNOWN INDICATION
     Route: 065
  17. AMLODIPINE [Concomitant]
     Active Substance: AMLODIPINE BESYLATE
     Indication: HYPERTENSION
     Route: 048
     Dates: start: 20120217
  18. CALCIFEDIOL [Concomitant]
     Active Substance: CALCIFEDIOL
     Indication: PRODUCT USED FOR UNKNOWN INDICATION
     Dosage: 4 DROPS
     Route: 065
  19. SEVORANE [Concomitant]
     Active Substance: SEVOFLURANE
     Indication: GENERAL ANAESTHESIA
     Route: 065
     Dates: start: 20120214, end: 20120214
  20. PHYSIONEAL 40 GLUCOSE 1,36%, SOLUTION POUR DIALYSE P?RITON?ALE [Concomitant]
     Active Substance: ANHYDROUS DEXTROSE\CALCIUM CHLORIDE\MAGNESIUM CHLORIDE\SODIUM BICARBONATE\SODIUM CHLORIDE\SODIUM LACTATE
     Indication: PERITONEAL DIALYSIS
     Route: 033
     Dates: start: 20120307, end: 20120309
  21. CALCIUM CARBONATE. [Concomitant]
     Active Substance: CALCIUM CARBONATE
     Indication: PRODUCT USED FOR UNKNOWN INDICATION
     Dosage: 1 TABLET
     Route: 065
  22. ZOPICLONE [Concomitant]
     Active Substance: ZOPICLONE
     Indication: PRODUCT USED FOR UNKNOWN INDICATION
     Route: 065
  23. SUFENTA [Concomitant]
     Active Substance: SUFENTANIL CITRATE
     Indication: GENERAL ANAESTHESIA
     Route: 065
     Dates: start: 20120214, end: 20120214

REACTIONS (18)
  - Dermatitis contact [Unknown]
  - Pyrexia [Unknown]
  - Delirium [Unknown]
  - Agitation [Unknown]
  - Subcutaneous abscess [Unknown]
  - Fungal disease carrier [Unknown]
  - Bipolar I disorder [Unknown]
  - Conjunctival disorder [Unknown]
  - Sepsis [Unknown]
  - Polyp [Unknown]
  - Klebsiella infection [Unknown]
  - Pneumonia [Recovered/Resolved with Sequelae]
  - Escherichia sepsis [Unknown]
  - Enterobacter infection [Unknown]
  - Pseudomonas infection [Unknown]
  - Secretion discharge [Unknown]
  - Toxic epidermal necrolysis [Recovered/Resolved]
  - Fluid overload [Unknown]

NARRATIVE: CASE EVENT DATE: 20120310
